FAERS Safety Report 7352304-0 (Version None)
Quarter: 2011Q1

REPORT INFORMATION
  Report Type: 
  Country: None (occurrence: None)
  Receive Date: 20110309
  Receipt Date: 20110309
  Transmission Date: 20110831
  Serious: Yes (Other)
  Sender: FDA-Public Use
  Company Number: None

PATIENT
  Age: 55 Year
  Sex: Female
  Weight: 63.5036 kg

DRUGS (1)
  1. LOMOTIL [Suspect]
     Indication: DIARRHOEA
     Dosage: 1 TAB AS NEEDED PO
     Route: 048
     Dates: start: 20110307, end: 20110307

REACTIONS (1)
  - ABDOMINAL PAIN UPPER [None]
